FAERS Safety Report 18503122 (Version 3)
Quarter: 2020Q4

REPORT INFORMATION
  Report Type: Spontaneous
  Country: DE (occurrence: DE)
  Receive Date: 20201113
  Receipt Date: 20201125
  Transmission Date: 20210114
  Serious: Yes (Death)
  Sender: FDA-Public Use
  Company Number: DE-TEVA-2020-DE-1847636

PATIENT
  Age: 69 Year
  Sex: Female
  Weight: 50 kg

DRUGS (19)
  1. CARBOPLATIN. [Suspect]
     Active Substance: CARBOPLATIN
     Indication: NON-SMALL CELL LUNG CANCER
     Route: 042
     Dates: start: 20200710, end: 20200731
  2. SPIRONOLACTON [Concomitant]
     Active Substance: SPIRONOLACTONE
     Dosage: 50 MILLIGRAM DAILY;
     Route: 048
  3. TORASEMID [Concomitant]
     Active Substance: TORSEMIDE
     Dosage: 10 MILLIGRAM DAILY;
     Route: 048
  4. L-THYROX [Concomitant]
     Active Substance: LEVOTHYROXINE SODIUM
     Dosage: OVER THE OTHER DAY 50 MICROGRAMS AND 75 MICROGRAMS
  5. PRESOMEN 28 COMPOSITUM 0,6/5MG [Concomitant]
     Dosage: 1 DOSAGE FORMS DAILY;
     Route: 048
  6. LIMPTAR N [Concomitant]
     Indication: MUSCLE SPASMS
     Dosage: DAILY DOSE: 2 DF DOSAGE FORM EVERY DAY
     Route: 048
  7. FENTANYL TTS 25 UG STADA [Concomitant]
     Indication: PAIN
     Dosage: DAILY DOSE: 0.025 MG MILLGRAM(S) EVERY HOURS
     Route: 062
     Dates: start: 202007
  8. MIRTAZAPIN [Concomitant]
     Active Substance: MIRTAZAPINE
     Dosage: 30 MILLIGRAM DAILY;
     Route: 048
  9. PEMBROLIZUMAB. [Suspect]
     Active Substance: PEMBROLIZUMAB
     Indication: NON-SMALL CELL LUNG CANCER
     Route: 042
     Dates: start: 20200710, end: 20200731
  10. CANDESARTAN. [Concomitant]
     Active Substance: CANDESARTAN
     Dosage: 2 MILLIGRAM DAILY;
     Route: 048
  11. BROMAZANIL 6 [Concomitant]
     Dosage: 0.5 - 0.5 - 0 - 1
     Route: 048
  12. LIXIANA [Concomitant]
     Active Substance: EDOXABAN TOSYLATE
     Indication: PULMONARY EMBOLISM
     Dosage: 60 MILLIGRAM DAILY;
     Route: 048
  13. FENTANYL TTS 25 UG STADA [Concomitant]
     Dosage: 1.2 MILLIGRAM DAILY;  FENTANYL TTS 50UG STADA
     Route: 062
     Dates: start: 202007
  14. PANTOPRAZOL [Concomitant]
     Active Substance: PANTOPRAZOLE SODIUM
     Indication: GASTROINTESTINAL DISORDER PROPHYLAXIS
  15. METOCLOPRAMID [Concomitant]
     Active Substance: METOCLOPRAMIDE
     Indication: NAUSEA
     Dosage: IF NECESSARY 3 SEPARATED DOSES
     Route: 048
  16. LAXOBERAL ABFUEHRTROPFEN [Concomitant]
     Indication: CONSTIPATION
     Dosage: IF NECESSARY
     Route: 048
  17. BISOPROLOL [Concomitant]
     Active Substance: BISOPROLOL
     Dosage: 1.25 MILLIGRAM DAILY;
     Route: 048
  18. PACLITAXEL. [Suspect]
     Active Substance: PACLITAXEL
     Indication: NON-SMALL CELL LUNG CANCER
     Route: 042
     Dates: start: 20200710, end: 20200731
  19. MOXIFLOXACIN. [Concomitant]
     Active Substance: MOXIFLOXACIN
     Indication: PYREXIA
     Dosage: IF NECESSARY 1X1 OVER 5 DAYS
     Route: 048

REACTIONS (2)
  - Death [Fatal]
  - General physical health deterioration [Fatal]

NARRATIVE: CASE EVENT DATE: 20200805
